FAERS Safety Report 16370727 (Version 2)
Quarter: 2019Q3

REPORT INFORMATION
  Report Type: Spontaneous
  Country: US (occurrence: US)
  Receive Date: 20190530
  Receipt Date: 20190812
  Transmission Date: 20191004
  Serious: No
  Sender: FDA-Public Use
  Company Number: US-BIOGEN-2019BI00744228

PATIENT
  Age: 59 Year
  Sex: Female

DRUGS (1)
  1. TYSABRI [Suspect]
     Active Substance: NATALIZUMAB
     Indication: MULTIPLE SCLEROSIS
     Route: 065
     Dates: start: 20161130, end: 20190320

REACTIONS (3)
  - Fall [Recovered/Resolved]
  - Gait inability [Recovered/Resolved]
  - Grip strength decreased [Unknown]

NARRATIVE: CASE EVENT DATE: 20181001
